FAERS Safety Report 9857834 (Version 3)
Quarter: 2014Q2

REPORT INFORMATION
  Report Type: Spontaneous
  Country: US (occurrence: US)
  Receive Date: 20140131
  Receipt Date: 20140401
  Transmission Date: 20141212
  Serious: No
  Sender: FDA-Public Use
  Company Number: US-009507513-1401USA014412

PATIENT
  Age: 33 Year
  Sex: Female
  Weight: 136.5 kg

DRUGS (2)
  1. NEXPLANON [Suspect]
     Dosage: 1 ROD
     Route: 059
     Dates: start: 20140127, end: 20140128
  2. NEXPLANON [Suspect]
     Dosage: UNK
     Route: 059
     Dates: start: 20140129

REACTIONS (3)
  - Device expulsion [Recovered/Resolved]
  - Medical device complication [Recovered/Resolved]
  - No adverse event [Recovered/Resolved]
